FAERS Safety Report 5355505-6 (Version None)
Quarter: 2007Q2

REPORT INFORMATION
  Report Type: 
  Country: None (occurrence: None)
  Receive Date: 20070613
  Receipt Date: 20070530
  Transmission Date: 20071010
  Serious: Yes (Other)
  Sender: FDA-Public Use
  Company Number: PHBS2007US09646

PATIENT
  Age: 32 Year
  Sex: Female
  Weight: 83.3 kg

DRUGS (4)
  1. OCTREOTIDE ACETATE [Suspect]
     Indication: HYPERTHYROIDISM
     Dosage: 0.1 MG, ONCE/SINGLE
     Route: 058
  2. OCTREOTIDE ACETATE [Suspect]
     Dosage: 0.1 MG, BID
     Route: 058
  3. OCTREOTIDE ACETATE [Suspect]
     Indication: HYPERTHYROIDISM
     Dosage: TWICE 10 MG 3 WEEKS APART
     Route: 030
  4. METOPROLOL SUCCINATE [Suspect]
     Indication: PALPITATIONS

REACTIONS (3)
  - CAESAREAN SECTION [None]
  - DRUG EXPOSURE DURING PREGNANCY [None]
  - NORMAL NEWBORN [None]
